FAERS Safety Report 5333133-6 (Version None)
Quarter: 2007Q2

REPORT INFORMATION
  Report Type: 
  Country: None (occurrence: None)
  Receive Date: 20070521
  Receipt Date: 20070515
  Transmission Date: 20071010
  Serious: Yes (Hospitalization)
  Sender: FDA-Public Use
  Company Number: 2007SP009360

PATIENT
  Age: 67 Year
  Sex: Female
  Weight: 83 kg

DRUGS (11)
  1. TEMOZOLOMIDE (S-P) [Suspect]
     Indication: GLIOBLASTOMA MULTIFORME
     Dosage: 145 MG; QD; PO
     Route: 048
     Dates: start: 20070312, end: 20070420
  2. ACTOS [Concomitant]
  3. DARVOCET [Concomitant]
  4. GEMFIBROZIL [Concomitant]
  5. GLIPIZIDE [Concomitant]
  6. HYZAAR [Concomitant]
  7. LIPITOR [Concomitant]
  8. METOPROLOL SUCCINATE [Concomitant]
  9. POTASSIUM ACETATE [Concomitant]
  10. PRILOSEC [Concomitant]
  11. FLOMAX [Concomitant]

REACTIONS (7)
  - DEHYDRATION [None]
  - FATIGUE [None]
  - HAEMOGLOBIN DECREASED [None]
  - HYPERBILIRUBINAEMIA [None]
  - NEUTROPHIL COUNT DECREASED [None]
  - PLATELET COUNT DECREASED [None]
  - WHITE BLOOD CELL COUNT DECREASED [None]
